FAERS Safety Report 10862500 (Version 1)
Quarter: 2015Q1

REPORT INFORMATION
  Report Type: Spontaneous
  Country: US (occurrence: None)
  Receive Date: 20150219
  Receipt Date: 20150219
  Transmission Date: 20150721
  Serious: No
  Sender: FDA-Public Use
  Company Number: None

PATIENT
  Age: 60 Year
  Sex: Female

DRUGS (11)
  1. AVONEX [Concomitant]
     Active Substance: INTERFERON BETA-1A
  2. LASIX [Concomitant]
     Active Substance: FUROSEMIDE
  3. AMPYRA [Suspect]
     Active Substance: DALFAMPRIDINE
     Indication: MULTIPLE SCLEROSIS
     Dosage: 1 DOSE ON 3/22/14
     Route: 048
     Dates: start: 20140322
  4. BUPROPION [Concomitant]
     Active Substance: BUPROPION
  5. PERCOCET [Concomitant]
     Active Substance: ACETAMINOPHEN\OXYCODONE HYDROCHLORIDE
  6. MECLIZINE [Concomitant]
     Active Substance: MECLIZINE\MECLIZINE HYDROCHLORIDE
  7. ZOVIRAX [Concomitant]
     Active Substance: ACYCLOVIR
  8. GABAPENTIN. [Concomitant]
     Active Substance: GABAPENTIN
  9. BITROPAN [Concomitant]
  10. BACLOFEN. [Concomitant]
     Active Substance: BACLOFEN
  11. R TAB [Concomitant]

REACTIONS (5)
  - Anxiety [None]
  - Gait disturbance [None]
  - Balance disorder [None]
  - Tremor [None]
  - Nervousness [None]

NARRATIVE: CASE EVENT DATE: 20140322
